FAERS Safety Report 4812091-4 (Version None)
Quarter: 2005Q4

REPORT INFORMATION
  Report Type: 
  Country: None (occurrence: None)
  Receive Date: 20051028
  Receipt Date: 20020605
  Transmission Date: 20060501
  Serious: No
  Sender: FDA-Public Use
  Company Number: US-GLAXOSMITHKLINE-A0371644A

PATIENT
  Age: 89 Year
  Sex: Male

DRUGS (11)
  1. ADVAIR DISKUS 100/50 [Suspect]
     Route: 055
  2. ASPIRIN [Concomitant]
  3. SYNTHROID [Concomitant]
  4. FOLIC ACID [Concomitant]
  5. TRINSICON [Concomitant]
  6. FLONASE [Concomitant]
  7. EYE DROPS [Concomitant]
  8. XALATAN [Concomitant]
  9. B12 [Concomitant]
     Route: 058
  10. VITAMIN E [Concomitant]
  11. COMBIVENT [Concomitant]
     Dosage: 4.7G FOUR TIMES PER DAY
     Route: 065

REACTIONS (6)
  - ECCHYMOSIS [None]
  - FIBROMYALGIA [None]
  - MUSCLE SPASMS [None]
  - PHARMACEUTICAL PRODUCT COMPLAINT [None]
  - POLYMYALGIA [None]
  - SKIN ATROPHY [None]
